FAERS Safety Report 6636225-4 (Version None)
Quarter: 2010Q1

REPORT INFORMATION
  Report Type: 
  Country: None (occurrence: None)
  Receive Date: 20100316
  Receipt Date: 20100311
  Transmission Date: 20100710
  Serious: Yes (Other)
  Sender: FDA-Public Use
  Company Number: IS-PFIZER INC-2010031389

PATIENT
  Age: 75 Year
  Sex: Female

DRUGS (1)
  1. TOVIAZ [Suspect]
     Dosage: UNK

REACTIONS (1)
  - ARRHYTHMIA [None]
